FAERS Safety Report 10666727 (Version 2)
Quarter: 2015Q1

REPORT INFORMATION
  Report Type: Report from Study
  Country: US (occurrence: US)
  Receive Date: 20141222
  Receipt Date: 20150116
  Transmission Date: 20150720
  Serious: Yes (Hospitalization)
  Sender: FDA-Public Use
  Company Number: US-ROCHE-1510292

PATIENT
  Age: 48 Year
  Sex: Female
  Weight: 135.9 kg

DRUGS (4)
  1. BEVACIZUMAB [Suspect]
     Active Substance: BEVACIZUMAB
     Indication: OVARIAN EPITHELIAL CANCER
     Dosage: 5MG/KG OVER 30-90 MINS ON DAY 1 OF CYCLE 2-6
     Route: 042
     Dates: start: 20140620
  2. ABT-888 [Suspect]
     Active Substance: VELIPARIB
     Indication: OVARIAN EPITHELIAL CANCER
     Dosage: 400 MG 2 TIMES A DAY ON DAYS -2-5 OF CYCLE 1-6
     Route: 048
  3. CARBOPLATIN. [Suspect]
     Active Substance: CARBOPLATIN
     Indication: OVARIAN EPITHELIAL CANCER
     Dosage: AUC = 6 OVER 30 MINS ON DAY 1 OF CYCLE 1-6
     Route: 042
  4. PACLITAXEL. [Suspect]
     Active Substance: PACLITAXEL
     Indication: OVARIAN EPITHELIAL CANCER
     Dosage: 175 MG/M2 OVER 3 HRS ON DAY 1 OF CYCLE 1-6
     Route: 042

REACTIONS (5)
  - Muscular weakness [Recovering/Resolving]
  - Anaemia [Recovering/Resolving]
  - Paraesthesia [Recovering/Resolving]
  - Hypokalaemia [Recovering/Resolving]
  - Hypomagnesaemia [Recovering/Resolving]

NARRATIVE: CASE EVENT DATE: 20141001
